FAERS Safety Report 7134204-4 (Version None)
Quarter: 2010Q4

REPORT INFORMATION
  Report Type: 
  Country: None (occurrence: None)
  Receive Date: 20101203
  Receipt Date: 20101123
  Transmission Date: 20110411
  Serious: Yes (Hospitalization)
  Sender: FDA-Public Use
  Company Number: SE-SANOFI-AVENTIS-2010SA067020

PATIENT
  Age: 74 Year
  Sex: Female

DRUGS (5)
  1. MULTAQ [Suspect]
     Indication: ATRIAL FIBRILLATION
     Route: 048
     Dates: start: 20100929, end: 20101118
  2. WARAN [Concomitant]
  3. IRON [Concomitant]
     Dates: start: 20100101
  4. DURBIS [Concomitant]
     Indication: ATRIAL FIBRILLATION
  5. AMILORIDE HCL AND HYDROCHLOROTHIAZIDE [Concomitant]
     Indication: ATRIAL FIBRILLATION

REACTIONS (5)
  - ATRIAL FIBRILLATION [None]
  - DRUG INEFFECTIVE [None]
  - FLUID RETENTION [None]
  - GASTROINTESTINAL DISORDER [None]
  - PROTHROMBIN LEVEL INCREASED [None]
